FAERS Safety Report 23631639 (Version 1)
Quarter: 2024Q1

REPORT INFORMATION
  Report Type: Spontaneous
  Country: US (occurrence: None)
  Receive Date: 20240313
  Receipt Date: 20240313
  Transmission Date: 20240410
  Serious: Yes (Other)
  Sender: FDA-Public Use
  Company Number: None

PATIENT
  Age: 64 Year
  Sex: Female
  Weight: 67.5 kg

DRUGS (5)
  1. CLINDAMYCIN [Suspect]
     Active Substance: CLINDAMYCIN
     Indication: Antibiotic prophylaxis
     Dosage: 1 CAPSULE EVERY 5 HOURS ORAL?
     Route: 048
     Dates: start: 20240307, end: 20240308
  2. AMOXICILLIN [Suspect]
     Active Substance: AMOXICILLIN
     Indication: Antibiotic prophylaxis
     Dosage: 1 CAPSULE EVERY 8 HOURS ORAL?
     Route: 048
     Dates: start: 20240306, end: 20240307
  3. Lansoprazole 15 mg. [Concomitant]
  4. Diphenhydramine 50 mg. [Concomitant]
  5. Whey Powder [Concomitant]

REACTIONS (6)
  - Arthralgia [None]
  - Joint stiffness [None]
  - Pain [None]
  - Movement disorder [None]
  - Blister [None]
  - Urticaria [None]

NARRATIVE: CASE EVENT DATE: 20240308
